FAERS Safety Report 9167693 (Version 1)
Quarter: 2013Q1

REPORT INFORMATION
  Report Type: Spontaneous
  Country: GB (occurrence: None)
  Receive Date: 20130304
  Receipt Date: 20130304
  Transmission Date: 20140127
  Serious: No
  Sender: FDA-Public Use
  Company Number: VALP20130003

PATIENT
  Age: 2 Year
  Sex: Female
  Weight: 12 kg

DRUGS (1)
  1. VALPROIC ACID [Suspect]
     Indication: ACCIDENTAL OVERDOSE
     Route: 048

REACTIONS (6)
  - Electrocardiogram QT prolonged [None]
  - Toxicity to various agents [None]
  - Depressed level of consciousness [None]
  - Coma scale abnormal [None]
  - Continuous haemodiafiltration [None]
  - Accidental overdose [None]
